FAERS Safety Report 23226902 (Version 1)
Quarter: 2023Q4

REPORT INFORMATION
  Report Type: Report from Study
  Country: US (occurrence: None)
  Receive Date: 20231124
  Receipt Date: 20231124
  Transmission Date: 20240109
  Serious: Yes (Hospitalization, Other)
  Sender: FDA-Public Use
  Company Number: 2023A263596

PATIENT
  Sex: Male

DRUGS (1)
  1. CALQUENCE [Suspect]
     Active Substance: ACALABRUTINIB
     Route: 048

REACTIONS (5)
  - Gait disturbance [Unknown]
  - COVID-19 [Unknown]
  - Illness [Unknown]
  - Atrial fibrillation [Unknown]
  - Product use issue [Unknown]
